FAERS Safety Report 4774753-7 (Version None)
Quarter: 2005Q3

REPORT INFORMATION
  Report Type: 
  Country: None (occurrence: None)
  Receive Date: 20050921
  Receipt Date: 20050914
  Transmission Date: 20060218
  Serious: Yes (Death)
  Sender: FDA-Public Use
  Company Number: JP-JPN-A20052187

PATIENT
  Sex: Female

DRUGS (10)
  1. PAXIL [Suspect]
     Indication: DEPRESSION
     Dosage: 20MG PER DAY
     Route: 048
     Dates: end: 20050911
  2. HALOPERIDOL [Concomitant]
     Route: 065
  3. EURODIN [Concomitant]
     Route: 048
  4. WARFARIN SODIUM [Concomitant]
     Route: 048
  5. DIGOSIN [Concomitant]
     Route: 065
  6. URSODIOL [Concomitant]
     Route: 065
  7. UBTEC [Concomitant]
     Route: 048
  8. INHIBACE [Concomitant]
     Route: 048
  9. LASIX [Concomitant]
     Route: 048
  10. SHINLUCK [Concomitant]
     Route: 048

REACTIONS (2)
  - DEPRESSED LEVEL OF CONSCIOUSNESS [None]
  - HYPERTHERMIA [None]
